FAERS Safety Report 16965665 (Version 2)
Quarter: 2019Q4

REPORT INFORMATION
  Report Type: Spontaneous
  Country: JP (occurrence: JP)
  Receive Date: 20191028
  Receipt Date: 20191029
  Transmission Date: 20200122
  Serious: Yes (Death, Other)
  Sender: FDA-Public Use
  Company Number: JP-PFIZER INC-2019458980

PATIENT
  Age: 53 Year
  Sex: Female

DRUGS (1)
  1. SULFASALAZINE. [Suspect]
     Active Substance: SULFASALAZINE
     Indication: RHEUMATOID ARTHRITIS
     Dosage: UNK

REACTIONS (4)
  - Factor XIII deficiency [Fatal]
  - Haemorrhagic diathesis [Fatal]
  - Drug reaction with eosinophilia and systemic symptoms [Fatal]
  - Type 1 diabetes mellitus [Fatal]
